FAERS Safety Report 5179131-7 (Version None)
Quarter: 2006Q4

REPORT INFORMATION
  Report Type: 
  Country: None (occurrence: None)
  Receive Date: 20061219
  Receipt Date: 20050721
  Transmission Date: 20070319
  Serious: Yes (Hospitalization)
  Sender: FDA-Public Use
  Company Number: US-KINGPHARMUSA00001-K200500981

PATIENT
  Age: 76 Year
  Sex: Female

DRUGS (12)
  1. ALTACE [Suspect]
     Dosage: 1.25 MG, QD
     Route: 048
  2. LASIX [Concomitant]
     Dosage: 40 MG, QD
     Route: 048
  3. CORDARONE [Suspect]
     Dosage: UNK, UNK
     Route: 048
     Dates: start: 20050607, end: 20050609
  4. KARDEGIC    /FRA/ [Concomitant]
     Dosage: 160 MG, QD
     Route: 048
  5. CARDENSIEL [Concomitant]
     Dosage: 3.75 MG, QD
     Route: 048
  6. PREVISCAN [Concomitant]
     Dosage: 20 MG, QD
     Route: 048
  7. PRAVASTATIN [Concomitant]
     Dosage: 40 MG, UNK
     Route: 048
  8. ALLOPURINOL [Concomitant]
     Dosage: 200 MG, UNK
     Route: 048
  9. OMEPRAZOLE [Concomitant]
     Dosage: 20 MG, UNK
     Route: 048
  10. BRICANYL [Concomitant]
  11. BRONCHODUAL [Concomitant]
  12. ATROVENT [Concomitant]
     Dosage: 6 UNK, QD

REACTIONS (5)
  - ARRHYTHMIA [None]
  - ELECTROCARDIOGRAM QT INTERVAL ABNORMAL [None]
  - ELECTROCARDIOGRAM QT PROLONGED [None]
  - TORSADE DE POINTES [None]
  - VENTRICULAR EXTRASYSTOLES [None]
